FAERS Safety Report 11696989 (Version 2)
Quarter: 2015Q4

REPORT INFORMATION
  Report Type: Spontaneous
  Country: US (occurrence: US)
  Receive Date: 20151104
  Receipt Date: 20151116
  Transmission Date: 20160304
  Serious: No
  Sender: FDA-Public Use
  Company Number: US-ACTELION PHARMACEUTICALS US, INC.-A-US2015-121478

PATIENT
  Age: 89 Year
  Sex: Female

DRUGS (1)
  1. TRACLEER [Suspect]
     Active Substance: BOSENTAN
     Indication: PULMONARY ARTERIAL HYPERTENSION
     Dosage: UNK
     Route: 048

REACTIONS (12)
  - Productive cough [Unknown]
  - Confusional state [Unknown]
  - Malaise [Unknown]
  - Feeling abnormal [Unknown]
  - Disorientation [Unknown]
  - Dysgeusia [Unknown]
  - Dyspnoea [Unknown]
  - Syncope [Unknown]
  - Dizziness [Unknown]
  - Nervousness [Unknown]
  - Dysphemia [Unknown]
  - Hypersomnia [Unknown]
